FAERS Safety Report 13760636 (Version 1)
Quarter: 2017Q3

REPORT INFORMATION
  Report Type: Report from Study
  Country: IT (occurrence: IT)
  Receive Date: 20170717
  Receipt Date: 20170717
  Transmission Date: 20171127
  Serious: Yes (Hospitalization)
  Sender: FDA-Public Use
  Company Number: IT-MYLANLABS-2017M1041099

PATIENT

DRUGS (3)
  1. LORTAAN [Suspect]
     Active Substance: LOSARTAN POTASSIUM
     Indication: HYPERTENSION
     Dosage: UNK
     Route: 048
     Dates: start: 20160101, end: 20160921
  2. RYTMONORM 150 MG COMPRESSE RIVESTITE (PROPAFENONE HYDROCHLORIDE) [Suspect]
     Active Substance: PROPAFENONE HYDROCHLORIDE
     Indication: HYPERTENSION
     Dosage: 450 MG DAILY
     Route: 048
     Dates: start: 20160101, end: 20160921
  3. ASCRIPTIN [Suspect]
     Active Substance: ASPIRIN
     Indication: PRODUCT USED FOR UNKNOWN INDICATION
     Dosage: UNK
     Route: 048
     Dates: start: 20160101, end: 20160921

REACTIONS (5)
  - Orthostatic hypotension [Recovering/Resolving]
  - Nausea [Recovering/Resolving]
  - Presyncope [Recovering/Resolving]
  - Vomiting [Recovering/Resolving]
  - Asthenia [Recovering/Resolving]

NARRATIVE: CASE EVENT DATE: 20160911
